FAERS Safety Report 5201887-5 (Version None)
Quarter: 2006Q4

REPORT INFORMATION
  Report Type: 
  Country: None (occurrence: None)
  Receive Date: 20061010
  Receipt Date: 20050914
  Transmission Date: 20070319
  Serious: Yes (Hospitalization, Other)
  Sender: FDA-Public Use
  Company Number: 2005-09-0941

PATIENT
  Age: 50 Year
  Sex: Female

DRUGS (3)
  1. TEMODAR [Suspect]
     Dosage: 130 MG QD ORAL
     Route: 048
     Dates: start: 20050718, end: 20050819
  2. BACTRIM DS [Suspect]
     Indication: PROPHYLAXIS
     Dosage: Q M, W, F ORAL
     Route: 048
  3. RADIATION THERAPY [Concomitant]

REACTIONS (1)
  - PANCYTOPENIA [None]
